FAERS Safety Report 23698192 (Version 1)
Quarter: 2024Q2

REPORT INFORMATION
  Report Type: Spontaneous
  Country: KR (occurrence: KR)
  Receive Date: 20240402
  Receipt Date: 20240402
  Transmission Date: 20240716
  Serious: Yes (Other)
  Sender: FDA-Public Use
  Company Number: KR-WT-2024-APC-037013

PATIENT
  Age: 83 Year
  Sex: Male

DRUGS (1)
  1. AVODART [Suspect]
     Active Substance: DUTASTERIDE
     Indication: Prostatomegaly
     Route: 065

REACTIONS (5)
  - Erectile dysfunction [Unknown]
  - Proctalgia [Unknown]
  - Urticaria [Unknown]
  - Acne [Unknown]
  - Abnormal faeces [Unknown]
